FAERS Safety Report 6909887-1 (Version None)
Quarter: 2010Q3

REPORT INFORMATION
  Report Type: 
  Country: None (occurrence: None)
  Receive Date: 20100806
  Receipt Date: 20100728
  Transmission Date: 20110219
  Serious: No
  Sender: FDA-Public Use
  Company Number: US-BIOGENIDEC-2010BI026422

PATIENT
  Sex: Female

DRUGS (3)
  1. TYSABRI [Suspect]
     Indication: MULTIPLE SCLEROSIS
     Route: 042
     Dates: start: 20070307, end: 20090930
  2. TYSABRI [Suspect]
     Route: 042
     Dates: start: 20100616
  3. AMPYRA [Concomitant]
     Indication: ABASIA

REACTIONS (2)
  - RENAL FUNCTION TEST ABNORMAL [None]
  - URINARY TRACT INFECTION [None]
